FAERS Safety Report 23100189 (Version 1)
Quarter: 2023Q4

REPORT INFORMATION
  Report Type: Report from Study
  Country: KR (occurrence: KR)
  Receive Date: 20231024
  Receipt Date: 20231024
  Transmission Date: 20240110
  Serious: Yes (Hospitalization)
  Sender: FDA-Public Use
  Company Number: KR-Eisai Medical Research-EC-2023-146090

PATIENT
  Age: 63 Year
  Sex: Male
  Weight: 44.2 kg

DRUGS (8)
  1. LENVATINIB [Suspect]
     Active Substance: LENVATINIB
     Indication: Oesophageal cancer metastatic
     Dosage: STARTING DOSE 20 MG; FLUCTUATED DOSAGE,  FREQUENCY UNKNOWN
     Route: 048
     Dates: start: 20221213, end: 20230102
  2. LENVATINIB [Suspect]
     Active Substance: LENVATINIB
     Route: 048
     Dates: start: 20230127, end: 20230207
  3. PEMBROLIZUMAB [Suspect]
     Active Substance: PEMBROLIZUMAB
     Indication: Oesophageal cancer metastatic
     Route: 041
     Dates: start: 20221213, end: 20221213
  4. ENCOVER [Concomitant]
     Dates: start: 20220129
  5. AMLODIPINE [Concomitant]
     Active Substance: AMLODIPINE BESYLATE
     Dates: start: 20220923
  6. LACTULOSE [Concomitant]
     Active Substance: LACTULOSE
     Dates: start: 20221004, end: 20230105
  7. CARVEDILOL [Concomitant]
     Active Substance: CARVEDILOL
     Dates: start: 20221018
  8. LAFUTIDINE [Concomitant]
     Active Substance: LAFUTIDINE
     Dates: start: 20220115, end: 20221227

REACTIONS (1)
  - Oesophagitis [Not Recovered/Not Resolved]

NARRATIVE: CASE EVENT DATE: 20230103
